FAERS Safety Report 5154588-6 (Version None)
Quarter: 2006Q4

REPORT INFORMATION
  Report Type: 
  Country: None (occurrence: None)
  Receive Date: 20061114
  Receipt Date: 20061026
  Transmission Date: 20070319
  Serious: Yes (Disabling)
  Sender: FDA-Public Use
  Company Number: S06-UKI-04634-01

PATIENT
  Age: 37 Year
  Sex: Female

DRUGS (2)
  1. CIPRALEX (ESCITALOPRAM) [Suspect]
     Indication: ANXIETY
     Dosage: 20 MG DAILY PO
     Route: 048
     Dates: start: 20060718, end: 20060725
  2. PROPRANOLOL [Concomitant]

REACTIONS (4)
  - AGEUSIA [None]
  - CONFUSIONAL STATE [None]
  - MUSCLE TWITCHING [None]
  - TREMOR [None]
